FAERS Safety Report 7496512-7 (Version None)
Quarter: 2011Q2

REPORT INFORMATION
  Report Type: 
  Country: None (occurrence: None)
  Receive Date: 20110523
  Receipt Date: 20110516
  Transmission Date: 20111010
  Serious: Yes (Hospitalization)
  Sender: FDA-Public Use
  Company Number: FR-SANOFI-AVENTIS-2011SA030096

PATIENT
  Age: 42 Year
  Sex: Male

DRUGS (10)
  1. IFOSFAMIDE [Suspect]
     Indication: DISEASE RECURRENCE
     Dates: start: 20050101
  2. GEMCITABINE [Concomitant]
     Dates: start: 20080801, end: 20080801
  3. TAXOTERE [Suspect]
     Dates: start: 20080501
  4. DOXORUBICIN HCL [Suspect]
     Indication: SARCOMA
     Dates: start: 20050101
  5. ETOPOSIDE [Suspect]
     Indication: DISEASE RECURRENCE
     Dates: start: 20080801
  6. DACARBAZINE [Suspect]
     Indication: DISEASE RECURRENCE
     Dates: start: 20050101
  7. DOXORUBICIN HCL [Suspect]
     Indication: DISEASE RECURRENCE
     Dates: start: 20050101
  8. DACARBAZINE [Suspect]
     Indication: SARCOMA
     Dates: start: 20050101
  9. IFOSFAMIDE [Suspect]
     Indication: SARCOMA
     Dates: start: 20050101
  10. CISPLATIN [Concomitant]
     Indication: DISEASE RECURRENCE
     Dates: start: 20080801, end: 20080801

REACTIONS (1)
  - ACUTE MYELOID LEUKAEMIA [None]
